FAERS Safety Report 19516631 (Version 1)
Quarter: 2021Q3

REPORT INFORMATION
  Report Type: Spontaneous
  Country: US (occurrence: US)
  Receive Date: 20210709
  Receipt Date: 20210709
  Transmission Date: 20211014
  Serious: No
  Sender: FDA-Public Use
  Company Number: US-ASTELLAS-2021US023893

PATIENT
  Age: 79 Year
  Sex: Female

DRUGS (1)
  1. MYRBETRIQ [Suspect]
     Active Substance: MIRABEGRON
     Indication: PRODUCT USED FOR UNKNOWN INDICATION
     Route: 065
     Dates: start: 20210622, end: 20210625

REACTIONS (4)
  - Lip pain [Recovering/Resolving]
  - Lip swelling [Recovering/Resolving]
  - Oral discomfort [Unknown]
  - Rash [Unknown]

NARRATIVE: CASE EVENT DATE: 202106
